FAERS Safety Report 10766870 (Version 2)
Quarter: 2015Q3

REPORT INFORMATION
  Report Type: Spontaneous
  Country: FR (occurrence: FR)
  Receive Date: 20150205
  Receipt Date: 20150708
  Transmission Date: 20151125
  Serious: Yes (Death, Hospitalization)
  Sender: FDA-Public Use
  Company Number: FR-PFIZER INC-2015044527

PATIENT
  Age: 65 Year
  Sex: Male

DRUGS (11)
  1. FORADIL [Concomitant]
     Active Substance: FORMOTEROL FUMARATE
     Dosage: 1 PUFF, 2X/DAY
  2. FLUVASTATIN [Concomitant]
     Active Substance: FLUVASTATIN SODIUM
     Dosage: 20 MG, 1X/DAY
  3. AMLOR [Concomitant]
     Active Substance: AMLODIPINE BESYLATE
     Dosage: 5 MG, 1X/DAY
  4. AIROMIR [Concomitant]
     Active Substance: ALBUTEROL SULFATE
     Dosage: 2 PUFFS, 4X/DAY
  5. LASILIX [Concomitant]
     Active Substance: FUROSEMIDE
     Dosage: 60 MG, 1X/DAY
  6. TARDYFERON [Concomitant]
     Active Substance: FERROUS SULFATE\FOLIC ACID
     Dosage: STRENGHT 80 MG
  7. ORELOX [Concomitant]
     Active Substance: CEFPODOXIME
     Indication: BRONCHITIS
     Dosage: UNK
     Dates: start: 20141229
  8. KARDEGIC [Concomitant]
     Active Substance: ASPIRIN LYSINE
     Dosage: 75 MG, 1X/DAY
  9. MIFLASONE [Concomitant]
     Active Substance: BECLOMETHASONE DIPROPIONATE
     Dosage: 400 ?G, 2X/DAY
  10. COVERSYL [Interacting]
     Active Substance: PERINDOPRIL
     Indication: HYPERTENSION
     Dosage: 5 MG, 1X/DAY
     Route: 048
  11. FELDENE [Suspect]
     Active Substance: PIROXICAM
     Indication: GOUT
     Dosage: 20 MG, DAILY
     Route: 048
     Dates: start: 20141222, end: 20141226

REACTIONS (4)
  - Staphylococcal infection [Recovered/Resolved]
  - Pulmonary sepsis [Recovered/Resolved]
  - Drug interaction [Fatal]
  - Acute kidney injury [Fatal]

NARRATIVE: CASE EVENT DATE: 20150102
